FAERS Safety Report 17554972 (Version 2)
Quarter: 2020Q1

REPORT INFORMATION
  Report Type: Spontaneous
  Country: US (occurrence: US)
  Receive Date: 20200318
  Receipt Date: 20200319
  Transmission Date: 20200409
  Serious: No
  Sender: FDA-Public Use
  Company Number: US-JNJFOC-20200320059

PATIENT
  Age: 82 Year
  Sex: Male
  Weight: 90 kg

DRUGS (1)
  1. DARZALEX [Suspect]
     Active Substance: DARATUMUMAB
     Indication: PLASMA CELL MYELOMA
     Dosage: THE FACILITY CALCULATED THAT THE PATIENT PROBABLY RECEIVED 10 MG OF THE DRUG. THE INFUSION BAG WAS L
     Route: 042
     Dates: start: 20200312, end: 20200312

REACTIONS (6)
  - Stridor [Unknown]
  - Cough [Unknown]
  - Infusion related reaction [Unknown]
  - Flushing [Unknown]
  - Dyspnoea [Unknown]
  - Erythema [Unknown]

NARRATIVE: CASE EVENT DATE: 20200312
